FAERS Safety Report 11787618 (Version 5)
Quarter: 2016Q3

REPORT INFORMATION
  Report Type: Report from Study
  Country: US (occurrence: US)
  Receive Date: 20151130
  Receipt Date: 20160715
  Transmission Date: 20161109
  Serious: Yes (Hospitalization)
  Sender: FDA-Public Use
  Company Number: US-ACTELION-A-US2015-127536

PATIENT
  Age: 63 Year
  Sex: Female

DRUGS (3)
  1. OPSUMIT [Suspect]
     Active Substance: MACITENTAN
     Indication: PULMONARY ARTERIAL HYPERTENSION
     Dosage: UNK
     Route: 048
  2. RIOCIGUAT [Concomitant]
     Active Substance: RIOCIGUAT
  3. VELETRI [Suspect]
     Active Substance: EPOPROSTENOL
     Indication: PULMONARY ARTERIAL HYPERTENSION
     Dosage: 4 NG/KG, PER MIN
     Route: 042
     Dates: start: 20150211

REACTIONS (13)
  - Pneumonia [Unknown]
  - Sepsis [Unknown]
  - Device related infection [Recovering/Resolving]
  - Asthenia [Unknown]
  - Deep vein thrombosis [Unknown]
  - Pyrexia [Unknown]
  - Weight increased [Unknown]
  - Blood electrolytes decreased [Unknown]
  - Disorientation [Unknown]
  - Generalised oedema [Unknown]
  - Confusional state [Unknown]
  - Central venous catheterisation [Recovering/Resolving]
  - Hyponatraemia [Unknown]
